FAERS Safety Report 4725748-0 (Version None)
Quarter: 2005Q3

REPORT INFORMATION
  Report Type: 
  Country: None (occurrence: None)
  Receive Date: 20050722
  Receipt Date: 20050722
  Transmission Date: 20060218
  Serious: Yes (Congenital Anomaly)
  Sender: FDA-Public Use
  Company Number: None

PATIENT
  Sex: Male
  Weight: 63 kg

DRUGS (2)
  1. ROACUTAN ISOTRETINOIN [Suspect]
     Indication: ACNE
     Dosage: 20MG  1 DAILY ORAL
     Route: 048
     Dates: start: 20040630, end: 20041228
  2. MELATONIN [Suspect]
     Indication: INSOMNIA
     Dosage: 3MG  1 DAILY ORAL
     Route: 048
     Dates: start: 20050403, end: 20050610

REACTIONS (5)
  - ACNE [None]
  - CONDITION AGGRAVATED [None]
  - HAEMORRHAGE [None]
  - HAEMORRHOIDS [None]
  - INSOMNIA [None]
